FAERS Safety Report 8415529 (Version 2)
Quarter: 2013Q1

REPORT INFORMATION
  Report Type: Spontaneous
  Country: US (occurrence: US)
  Receive Date: 20120218
  Receipt Date: 20130318
  Transmission Date: 20140127
  Serious: Yes (Other)
  Sender: FDA-Public Use
  Company Number: US-ALLERGAN-200407368

PATIENT
  Age: 75 Year
  Sex: Female

DRUGS (20)
  1. BOTOX? [Suspect]
     Indication: TORTICOLLIS
     Dosage: 300 UNITS, SINGLE
     Route: 030
     Dates: start: 200408, end: 200408
  2. CLONOPIN [Concomitant]
     Indication: PRODUCT USED FOR UNKNOWN INDICATION
  3. VICODIN [Concomitant]
     Indication: PRODUCT USED FOR UNKNOWN INDICATION
  4. VASOTEC [Concomitant]
     Indication: PRODUCT USED FOR UNKNOWN INDICATION
  5. LIDOCAINE [Concomitant]
     Indication: PRODUCT USED FOR UNKNOWN INDICATION
  6. CIPRO                              /00042702/ [Concomitant]
  7. VIOXX [Concomitant]
  8. COZOR [Concomitant]
     Indication: HYPERTENSION
     Dosage: 25 MG, QD
     Route: 048
  9. ASA [Concomitant]
     Indication: PRODUCT USED FOR UNKNOWN INDICATION
     Dosage: 81 MG, QD
     Route: 048
  10. IRON [Concomitant]
     Indication: ANAEMIA
     Dosage: 65 MG, QD
     Route: 048
  11. VITAMIN B12 SHOTS [Concomitant]
     Indication: ANAEMIA
     Dosage: UNK
  12. CALCIUM [Concomitant]
     Indication: PRODUCT USED FOR UNKNOWN INDICATION
     Dosage: UNK
  13. CENTRUM [Concomitant]
     Indication: PRODUCT USED FOR UNKNOWN INDICATION
     Dosage: UNK
  14. MAGNESIUM [Concomitant]
     Indication: PRODUCT USED FOR UNKNOWN INDICATION
     Dosage: UNK
     Route: 048
  15. KLONIPINE [Concomitant]
     Indication: DYSTONIA
     Dosage: 0.5 MG, BID
     Route: 048
  16. VICODIN [Concomitant]
     Indication: DYSTONIA
     Dosage: 500 MG, QD
     Route: 048
  17. ARTIFICIAL TEARS [Concomitant]
     Indication: DRY EYE
     Dosage: UNK
  18. PREDNISONE ACETATE [Concomitant]
     Indication: CORNEAL TRANSPLANT
     Dosage: 1 GTT, QAM
     Route: 047
  19. TIMOLOL [Concomitant]
     Indication: CORNEAL TRANSPLANT
     Dosage: 1 GTT, QAM
  20. TRAVATAN [Concomitant]
     Indication: CORNEAL TRANSPLANT
     Dosage: 1 GTT, QHS
     Route: 047

REACTIONS (9)
  - Nerve injury [Unknown]
  - Feeling hot [Not Recovered/Not Resolved]
  - Swelling face [Not Recovered/Not Resolved]
  - Erythema [Not Recovered/Not Resolved]
  - Facial paresis [Not Recovered/Not Resolved]
  - Skin exfoliation [Not Recovered/Not Resolved]
  - Skin irritation [Not Recovered/Not Resolved]
  - Anaphylactic reaction [Unknown]
  - Cerebrovascular accident [Unknown]
